FAERS Safety Report 10662950 (Version 1)
Quarter: 2014Q4

REPORT INFORMATION
  Report Type: Spontaneous
  Country: US (occurrence: US)
  Receive Date: 20141218
  Receipt Date: 20141218
  Transmission Date: 20150529
  Serious: No
  Sender: FDA-Public Use
  Company Number: US-GLAXOSMITHKLINE-A1067345A

PATIENT

DRUGS (2)
  1. AVODART [Concomitant]
     Active Substance: DUTASTERIDE
  2. COREG CR [Suspect]
     Active Substance: CARVEDILOL PHOSPHATE
     Indication: PRODUCT USED FOR UNKNOWN INDICATION
     Dosage: 40 MG CAPSULE AT UNKNOWN DOSING
     Route: 065
     Dates: start: 20091026

REACTIONS (1)
  - Depression [Unknown]
